FAERS Safety Report 25363605 (Version 1)
Quarter: 2025Q2

REPORT INFORMATION
  Report Type: Spontaneous
  Country: TW (occurrence: TW)
  Receive Date: 20250527
  Receipt Date: 20250527
  Transmission Date: 20250716
  Serious: Yes (Death)
  Sender: BAYER HEALTHCARE PHARMACEUTICALS INC.
  Company Number: TW-BAYER-2025A069074

PATIENT
  Age: 85 Year
  Sex: Male
  Weight: 68.2 kg

DRUGS (29)
  1. ULTRAVIST [Suspect]
     Active Substance: IOPROMIDE
     Indication: Angioplasty
     Route: 013
     Dates: start: 20250424, end: 20250424
  2. JANUMET [Suspect]
     Active Substance: METFORMIN HYDROCHLORIDE\SITAGLIPTIN PHOSPHATE
     Indication: Type 2 diabetes mellitus
     Dosage: 900 MG, BID
     Route: 048
     Dates: start: 20250418, end: 20250424
  3. Piperacilin+tazobactam [Concomitant]
     Indication: Infection
     Dosage: 4500 MG, Q8HR
     Route: 041
     Dates: start: 20250423, end: 20250426
  4. CLINDAMYCIN [Concomitant]
     Active Substance: CLINDAMYCIN
     Dosage: 600 MG, BID
     Route: 041
     Dates: start: 20250423, end: 20250426
  5. PROSTAGLANDIN E1 [Concomitant]
     Active Substance: ALPROSTADIL
     Indication: Peripheral arterial occlusive disease
     Dosage: 40 ?G, BID
     Route: 041
     Dates: start: 20250421, end: 20250424
  6. DIPYRIDAMOLE [Concomitant]
     Active Substance: DIPYRIDAMOLE
     Indication: Vertebrobasilar insufficiency
     Dosage: 25 MG, BID
     Route: 048
     Dates: start: 20250419, end: 20250426
  7. DIMETHICONE [Concomitant]
     Active Substance: DIMETHICONE
     Indication: Flatulence
     Dosage: 50 MG, TID
     Route: 048
     Dates: start: 20250420
  8. Mopride [Concomitant]
     Indication: Nausea
     Dosage: 5 MG, TID
     Route: 048
     Dates: start: 20250423, end: 20250424
  9. Mopride [Concomitant]
     Indication: Vomiting
  10. Linlip [Concomitant]
     Indication: Vertebrobasilar insufficiency
     Dosage: 200 MG, QD
     Route: 048
     Dates: start: 20250418, end: 20250425
  11. DIOVAN [Concomitant]
     Active Substance: VALSARTAN
     Indication: Hypertension
     Dosage: 80 MG, QD
     Route: 048
     Dates: start: 20250419, end: 20250424
  12. Acetal [Concomitant]
     Indication: Pain
     Dosage: 500 MG, QID
     Route: 048
     Dates: start: 20250418, end: 20250426
  13. Acetal [Concomitant]
     Indication: Pyrexia
  14. ULTANE [Concomitant]
     Active Substance: SEVOFLURANE
     Indication: Anaesthesia
     Dates: start: 20250421, end: 20250421
  15. ULTANE [Concomitant]
     Active Substance: SEVOFLURANE
     Indication: Anaesthesia
     Route: 055
     Dates: start: 20250424, end: 20250424
  16. Methasone [Concomitant]
     Indication: Anaesthesia
     Dates: start: 20250421, end: 20250421
  17. Methasone [Concomitant]
     Indication: Anaesthesia
     Route: 040
     Dates: start: 20250424, end: 20250424
  18. XYLOCAINE [Concomitant]
     Active Substance: LIDOCAINE HYDROCHLORIDE
     Indication: Anaesthesia
     Dates: start: 20250421, end: 20250421
  19. XYLOCAINE [Concomitant]
     Active Substance: LIDOCAINE HYDROCHLORIDE
     Indication: Anaesthesia
     Route: 040
     Dates: start: 20250424, end: 20250424
  20. FENTANYL CITRATE [Concomitant]
     Active Substance: FENTANYL CITRATE
     Indication: Anaesthesia
     Dates: start: 20250421, end: 20250421
  21. FENTANYL CITRATE [Concomitant]
     Active Substance: FENTANYL CITRATE
     Indication: Anaesthesia
     Route: 040
     Dates: start: 20250424, end: 20250424
  22. ROCURONIUM BROMIDE [Concomitant]
     Active Substance: ROCURONIUM BROMIDE
     Indication: Anaesthesia
     Route: 040
     Dates: start: 20250424, end: 20250424
  23. BRIDION [Concomitant]
     Active Substance: SUGAMMADEX SODIUM
     Indication: Neuromuscular blockade reversal
     Route: 040
     Dates: start: 20250424, end: 20250424
  24. NOREPINEPHRINE BITARTRATE [Concomitant]
     Active Substance: NOREPINEPHRINE BITARTRATE
     Indication: Hypotension
     Route: 040
     Dates: start: 20250424, end: 20250424
  25. Holdipine [Concomitant]
     Route: 040
     Dates: start: 20250424, end: 20250424
  26. SODIUM BICARBONATE [Concomitant]
     Active Substance: SODIUM BICARBONATE
     Indication: Acidosis
     Dates: start: 20250424, end: 20250424
  27. Pine [Concomitant]
     Indication: Wound treatment
     Route: 050
     Dates: start: 20250424, end: 20250424
  28. Pine [Concomitant]
     Indication: Anticoagulant therapy
     Route: 040
     Dates: start: 20250424, end: 20250424
  29. PROTAMINE SULFATE [Concomitant]
     Active Substance: PROTAMINE SULFATE
     Indication: Heparin neutralisation therapy
     Route: 041
     Dates: start: 20250424, end: 20250424

REACTIONS (3)
  - Acute kidney injury [Fatal]
  - Lactic acidosis [Fatal]
  - Shock [Fatal]

NARRATIVE: CASE EVENT DATE: 20250425
